FAERS Safety Report 6471648-8 (Version None)
Quarter: 2009Q4

REPORT INFORMATION
  Report Type: 
  Country: None (occurrence: None)
  Receive Date: 20091203
  Receipt Date: 20080325
  Transmission Date: 20100525
  Serious: Yes (Hospitalization)
  Sender: FDA-Public Use
  Company Number: GB-ELI_LILLY_AND_COMPANY-GB200803002396

PATIENT
  Sex: Female

DRUGS (1)
  1. PROZAC [Suspect]

REACTIONS (3)
  - ELECTROCARDIOGRAM QT PROLONGED [None]
  - LOWER RESPIRATORY TRACT INFECTION [None]
  - PLEURISY [None]
